FAERS Safety Report 14666157 (Version 2)
Quarter: 2018Q2

REPORT INFORMATION
  Report Type: Report from Study
  Country: US (occurrence: US)
  Receive Date: 20180321
  Receipt Date: 20180406
  Transmission Date: 20180711
  Serious: Yes (Hospitalization, Other)
  Sender: FDA-Public Use
  Company Number: US-GILEAD-2018-0324939

PATIENT
  Age: 61 Year
  Sex: Female
  Weight: 87.75 kg

DRUGS (11)
  1. LEDIPASVIR/SOFOSBUVIR [Suspect]
     Active Substance: LEDIPASVIR\SOFOSBUVIR
     Indication: CHRONIC HEPATITIS C
     Dosage: 1 DF, QD
     Route: 048
     Dates: start: 2017, end: 201708
  2. MELOXICAM. [Concomitant]
     Active Substance: MELOXICAM
  3. CLONIDINE. [Concomitant]
     Active Substance: CLONIDINE
  4. AMLODIPINE [Concomitant]
     Active Substance: AMLODIPINE BESYLATE
  5. FERROUS SULFATE. [Concomitant]
     Active Substance: FERROUS SULFATE
  6. GLIMEPIRIDE. [Concomitant]
     Active Substance: GLIMEPIRIDE
  7. CINNAMON                           /01647501/ [Concomitant]
     Active Substance: CINNAMON
  8. COENZYME Q10 [Concomitant]
     Active Substance: UBIDECARENONE
  9. LOSARTAN. [Concomitant]
     Active Substance: LOSARTAN
  10. ZANTAC [Concomitant]
     Active Substance: RANITIDINE HYDROCHLORIDE
  11. HYDROCHLOROTHIAZIDE. [Concomitant]
     Active Substance: HYDROCHLOROTHIAZIDE

REACTIONS (8)
  - Therapy cessation [Not Recovered/Not Resolved]
  - Drug dose omission [Unknown]
  - Hepatitis C [Unknown]
  - Epistaxis [Unknown]
  - Hypertension [Unknown]
  - Drug ineffective [Unknown]
  - Genotype drug resistance test positive [Not Recovered/Not Resolved]
  - Gastrointestinal haemorrhage [Unknown]

NARRATIVE: CASE EVENT DATE: 201708
